FAERS Safety Report 8343481-3 (Version None)
Quarter: 2012Q2

REPORT INFORMATION
  Report Type: 
  Country: None (occurrence: None)
  Receive Date: 20120508
  Receipt Date: 20120504
  Transmission Date: 20120825
  Serious: Yes (Death)
  Sender: FDA-Public Use
  Company Number: PHHO2012BF003950

PATIENT
  Sex: Female

DRUGS (1)
  1. CGP 56697 [Suspect]
     Indication: MALARIA
     Dosage: UNK

REACTIONS (1)
  - ABDOMINAL PAIN [None]
